FAERS Safety Report 12890337 (Version 5)
Quarter: 2017Q1

REPORT INFORMATION
  Report Type: Spontaneous
  Country: JP (occurrence: JP)
  Receive Date: 20161027
  Receipt Date: 20170118
  Transmission Date: 20170428
  Serious: Yes (Death, Hospitalization, Other)
  Sender: FDA-Public Use
  Company Number: JP-BRISTOL-MYERS SQUIBB COMPANY-BMS-2016-090444

PATIENT
  Age: 83 Year
  Sex: Male
  Weight: 58.5 kg

DRUGS (2)
  1. ELIQUIS [Suspect]
     Active Substance: APIXABAN
     Indication: CEREBROVASCULAR ACCIDENT PROPHYLAXIS
     Dosage: 2.5 MG, BID
     Route: 048
     Dates: end: 20161012
  2. ELIQUIS [Suspect]
     Active Substance: APIXABAN
     Indication: PRODUCT USED FOR UNKNOWN INDICATION
     Dosage: 2.5 MG, BID
     Route: 048

REACTIONS (6)
  - Hernia repair [Unknown]
  - Acute myocardial infarction [Fatal]
  - Percutaneous coronary intervention [Unknown]
  - Inguinal hernia [Recovering/Resolving]
  - Cardiac failure [Fatal]
  - Dialysis [Unknown]

NARRATIVE: CASE EVENT DATE: 20161014
